FAERS Safety Report 6343672-7 (Version None)
Quarter: 2009Q3

REPORT INFORMATION
  Report Type: 
  Country: None (occurrence: None)
  Receive Date: 20090821
  Receipt Date: 20090526
  Transmission Date: 20100115
  Serious: No
  Sender: FDA-Public Use
  Company Number: 8046926

PATIENT
  Age: 49 Year
  Sex: Female
  Weight: 59.84 kg

DRUGS (13)
  1. CIMZIA [Suspect]
     Indication: CROHN'S DISEASE
     Dosage: 400 MG SC
     Route: 058
     Dates: end: 20090526
  2. PLAVIX [Concomitant]
  3. MOBIC [Concomitant]
  4. METHADONE HCL [Concomitant]
  5. GABAPENTIN [Concomitant]
  6. PREVACID [Concomitant]
  7. ENTOCORT EC [Concomitant]
  8. MERCAPTOPURINE [Concomitant]
  9. BUSPIRONE HCL [Concomitant]
  10. LEXAPRO [Concomitant]
  11. ORTHO-NOVUM [Concomitant]
  12. TYLENOL (CAPLET) [Concomitant]
  13. VITAMINS [Concomitant]

REACTIONS (3)
  - HEADACHE [None]
  - INJECTION SITE REACTION [None]
  - PAIN [None]
